FAERS Safety Report 6422883-6 (Version None)
Quarter: 2009Q4

REPORT INFORMATION
  Report Type: 
  Country: None (occurrence: None)
  Receive Date: 20091102
  Receipt Date: 20091023
  Transmission Date: 20100525
  Serious: Yes (Death)
  Sender: FDA-Public Use
  Company Number: US-ROCHE-664365

PATIENT
  Sex: Female

DRUGS (23)
  1. BONIVA [Suspect]
     Indication: DRUG USE FOR UNKNOWN INDICATION
     Route: 065
  2. FLOVENT [Suspect]
     Indication: CHRONIC OBSTRUCTIVE PULMONARY DISEASE
     Dosage: FORM: PUFF, DRUG: FLUTICASONE PROPIONATE HFA-CFC FREE INHALER.
     Route: 055
     Dates: start: 20090806
  3. NEXIUM [Concomitant]
  4. FLOMAX [Concomitant]
  5. MUCINEX [Concomitant]
  6. LISINOPRIL [Concomitant]
  7. LORAZEPAM [Concomitant]
  8. SINGULAIR [Concomitant]
  9. ZYPREXA [Concomitant]
  10. PERCOCET [Concomitant]
  11. TRAZODONE [Concomitant]
  12. TEMAZEPAM [Concomitant]
  13. DEMADEX [Concomitant]
  14. TORSEMIDE [Concomitant]
  15. PREDNISONE [Concomitant]
  16. AMBIEN [Concomitant]
  17. COMBIVENT [Concomitant]
  18. CALCIUM [Concomitant]
     Dosage: DRUG: CALCIUM SALT
  19. URECHOLINE [Concomitant]
  20. FLEXERIL [Concomitant]
  21. CARDIZEM [Concomitant]
  22. DEPAKOTE [Concomitant]
  23. DOXAZOSIN MESYLATE [Concomitant]

REACTIONS (1)
  - DEATH [None]
